FAERS Safety Report 20904829 (Version 1)
Quarter: 2022Q2

REPORT INFORMATION
  Report Type: Spontaneous
  Country: US (occurrence: None)
  Receive Date: 20220601
  Receipt Date: 20220601
  Transmission Date: 20220721
  Serious: No
  Sender: FDA-Public Use
  Company Number: None

PATIENT
  Age: 83 Year
  Sex: Male
  Weight: 81.65 kg

DRUGS (35)
  1. ABIRATERONE [Suspect]
     Active Substance: ABIRATERONE
     Indication: Prostatic disorder
     Dosage: FREQUENCY : DAILY;?
     Route: 048
     Dates: start: 20220105
  2. PREDNISONE [Suspect]
     Active Substance: PREDNISONE
     Indication: Prostatic disorder
     Dosage: FREQUENCY : TWICE A DAY;?
     Route: 048
  3. PREDNISONE [Concomitant]
     Active Substance: PREDNISONE
  4. ATENOLOL [Concomitant]
     Active Substance: ATENOLOL
  5. CETIRIZINE [Concomitant]
     Active Substance: CETIRIZINE HYDROCHLORIDE
  6. COZAAR [Concomitant]
     Active Substance: LOSARTAN POTASSIUM
  7. VITAMINS [Concomitant]
     Active Substance: VITAMINS
  8. DETROL [Concomitant]
     Active Substance: TOLTERODINE TARTRATE
  9. ELIQUIS [Concomitant]
     Active Substance: APIXABAN
  10. FLOMAX [Concomitant]
     Active Substance: TAMSULOSIN HYDROCHLORIDE
  11. FUROSEMIDE [Concomitant]
     Active Substance: FUROSEMIDE
  12. LEVOTHYROXINE [Concomitant]
     Active Substance: LEVOTHYROXINE
  13. MAGNESIUM [Concomitant]
     Active Substance: MAGNESIUM
  14. MAGNESIUM OXIDE [Concomitant]
     Active Substance: MAGNESIUM OXIDE
  15. MEGACE ES [Concomitant]
     Active Substance: MEGESTROL ACETATE
  16. POTASSIUM CHLORIDE [Concomitant]
     Active Substance: POTASSIUM CHLORIDE
  17. VITAMIN D3 [Concomitant]
     Active Substance: CHOLECALCIFEROL
  18. ZOCOR [Concomitant]
     Active Substance: SIMVASTATIN
  19. MELATONIN [Concomitant]
     Active Substance: MELATONIN
  20. GLUCOSAMINE [Concomitant]
     Active Substance: GLUCOSAMINE
  21. GLUCOSAMINE [Concomitant]
     Active Substance: GLUCOSAMINE
  22. LUPRON [Concomitant]
     Active Substance: LEUPROLIDE ACETATE
  23. VITAMINS [Concomitant]
     Active Substance: VITAMINS
  24. TYLENOL EXTRA STRENGTH [Concomitant]
     Active Substance: ACETAMINOPHEN
  25. VITAMIN B12 [Concomitant]
     Active Substance: CYANOCOBALAMIN
  26. CYTOMEL [Concomitant]
     Active Substance: LIOTHYRONINE SODIUM
  27. LASIX [Concomitant]
     Active Substance: FUROSEMIDE
  28. POTASSIUM CHLORIDE [Concomitant]
     Active Substance: POTASSIUM CHLORIDE
  29. FLOMA [Concomitant]
  30. LOSARTAN POTASSIUM [Concomitant]
     Active Substance: LOSARTAN POTASSIUM
  31. ATENOLOL [Concomitant]
     Active Substance: ATENOLOL
  32. MEGESTROL ACETATE [Concomitant]
     Active Substance: MEGESTROL ACETATE
  33. BICALUTAMIDE [Concomitant]
  34. XGEVA [Concomitant]
     Active Substance: DENOSUMAB
  35. PERCOCET [Concomitant]
     Active Substance: ACETAMINOPHEN\OXYCODONE HYDROCHLORIDE

REACTIONS (1)
  - Drug ineffective [None]
